FAERS Safety Report 15737066 (Version 1)
Quarter: 2018Q4

REPORT INFORMATION
  Report Type: Spontaneous
  Country: PL (occurrence: PL)
  Receive Date: 20181218
  Receipt Date: 20181218
  Transmission Date: 20190205
  Serious: Yes (Other)
  Sender: FDA-Public Use
  Company Number: PL-MYLANLABS-2018M1093780

PATIENT
  Sex: Male

DRUGS (19)
  1. PREDNISONE. [Suspect]
     Active Substance: PREDNISONE
     Dosage: AFTER 2ND DAH EPISODE
     Route: 048
     Dates: start: 201408
  2. WARFARIN [Concomitant]
     Active Substance: WARFARIN
     Indication: ANTICOAGULANT THERAPY
     Route: 065
  3. PREDNISONE. [Suspect]
     Active Substance: PREDNISONE
     Dosage: AFTER 3RD DAH EPISODE
     Route: 048
     Dates: start: 201502
  4. PREDNISONE. [Suspect]
     Active Substance: PREDNISONE
     Dosage: AFTER 3RD DAH EPISODE; AT THE TIME OF PNEUMONIA ONSET
     Route: 048
     Dates: start: 201502
  5. CLARITHROMYCIN. [Concomitant]
     Active Substance: CLARITHROMYCIN
     Indication: ANTIBIOTIC PROPHYLAXIS
     Route: 065
  6. IMMUNOGLOBULIN                     /00025201/ [Concomitant]
     Active Substance: HUMAN IMMUNOGLOBULIN G
     Indication: PRODUCT USED FOR UNKNOWN INDICATION
     Dosage: 50 G DAILY FOR 5 DAYS.
     Route: 042
     Dates: start: 201408
  7. PREDNISONE. [Suspect]
     Active Substance: PREDNISONE
     Dosage: AFTER 2ND DAH EPISODE
     Route: 048
     Dates: start: 201408
  8. METHYLPREDNISOLONE. [Suspect]
     Active Substance: METHYLPREDNISOLONE
     Indication: PULMONARY ALVEOLAR HAEMORRHAGE
     Dosage: ONE METHYLPREDNISOLONE PULSE.
     Route: 065
     Dates: start: 201312
  9. PREDNISONE. [Suspect]
     Active Substance: PREDNISONE
     Dosage: TAPERED TO 75 MG; AFTER 3RD DAH EPISODE
     Route: 048
     Dates: start: 201502
  10. METHYLPREDNISOLONE. [Suspect]
     Active Substance: METHYLPREDNISOLONE
     Dosage: TWO METHYLPREDNISOLONE PULSES OF 1000 MG EACH.
     Route: 065
     Dates: start: 201312
  11. FLUCONAZOLE. [Concomitant]
     Active Substance: FLUCONAZOLE
     Indication: ANTIFUNGAL TREATMENT
     Route: 065
  12. MYCOPHENOLATE MOFETIL. [Concomitant]
     Active Substance: MYCOPHENOLATE MOFETIL
     Route: 065
     Dates: start: 201701
  13. PREDNISONE. [Suspect]
     Active Substance: PREDNISONE
     Indication: PULMONARY ALVEOLAR HAEMORRHAGE
     Dosage: AFTER 1ST DAH EPISODE
     Route: 048
     Dates: start: 201312
  14. PREDNISONE. [Suspect]
     Active Substance: PREDNISONE
     Dosage: AFTER 1ST DAH EPISODE
     Route: 048
     Dates: start: 201401
  15. PREDNISONE. [Suspect]
     Active Substance: PREDNISONE
     Dosage: AFTER 2ND DAH EPISODE
     Route: 048
     Dates: start: 201408
  16. METHYLPREDNISOLONE. [Suspect]
     Active Substance: METHYLPREDNISOLONE
     Dosage: THREE METHYLPREDNISOLONE PULSES OF 500 MG EACH FOR 3 DAYS.
     Route: 065
     Dates: start: 201408
  17. MYCOPHENOLATE MOFETIL. [Concomitant]
     Active Substance: MYCOPHENOLATE MOFETIL
     Indication: PULMONARY ALVEOLAR HAEMORRHAGE
     Route: 065
     Dates: start: 201502
  18. AMOXICILLIN/CLAVULANIC ACID [Concomitant]
     Active Substance: AMOXICILLIN\CLAVULANIC ACID
     Indication: ANTIBIOTIC PROPHYLAXIS
     Route: 065
  19. CYCLOPHOSPHAMIDE. [Concomitant]
     Active Substance: CYCLOPHOSPHAMIDE
     Indication: PULMONARY ALVEOLAR HAEMORRHAGE
     Dosage: 6 CYCLOPHOSPHAMIDE PULSES 1.5 G EACH EVERY FOUR WEEKS.
     Route: 065
     Dates: start: 201401, end: 201407

REACTIONS (5)
  - Pneumonia [Unknown]
  - Osteoporosis [Unknown]
  - Pathological fracture [Unknown]
  - Rib fracture [Unknown]
  - Vitamin D deficiency [Unknown]

NARRATIVE: CASE EVENT DATE: 201504
